FAERS Safety Report 25673240 (Version 1)
Quarter: 2025Q3

REPORT INFORMATION
  Report Type: Spontaneous
  Country: CA (occurrence: None)
  Receive Date: 20250813
  Receipt Date: 20250813
  Transmission Date: 20251021
  Serious: Yes (Hospitalization, Other)
  Sender: ORION
  Company Number: CA-Orion Corporation ORION PHARMA-TREX2025-0129

PATIENT
  Age: 72 Year
  Sex: Male
  Weight: 79 kg

DRUGS (10)
  1. METHOTREXATE [Suspect]
     Active Substance: METHOTREXATE
     Indication: Rheumatoid arthritis
  2. ALLOPURINOL [Concomitant]
     Active Substance: ALLOPURINOL
  3. AMLODIPINE [Concomitant]
     Active Substance: AMLODIPINE BESYLATE
  4. ATORVASTATIN CALCIUM [Concomitant]
     Active Substance: ATORVASTATIN CALCIUM
  5. CELECOXIB [Concomitant]
     Active Substance: CELECOXIB
  6. LANSOPRAZOLE [Concomitant]
     Active Substance: LANSOPRAZOLE
  7. VALSARTAN [Concomitant]
     Active Substance: VALSARTAN
  8. METFORMIN [Concomitant]
     Active Substance: METFORMIN HYDROCHLORIDE
  9. FOLIC ACID [Concomitant]
     Active Substance: FOLIC ACID
  10. COLCHICINE [Concomitant]
     Active Substance: COLCHICINE

REACTIONS (5)
  - Pneumonia [Recovering/Resolving]
  - Hypoxia [Recovering/Resolving]
  - Endotracheal intubation [Recovering/Resolving]
  - Inappropriate schedule of product administration [Unknown]
  - Overdose [Unknown]
